FAERS Safety Report 8921087 (Version 2)
Quarter: 2012Q4

REPORT INFORMATION
  Report Type: 
  Country: GB (occurrence: GB)
  Receive Date: 20121123
  Receipt Date: 20121128
  Transmission Date: 20130627
  Serious: Yes (Death, Other)
  Sender: FDA-Public Use
  Company Number: IE-AMGEN-IRLSP2012074630

PATIENT
  Age: 57 Year
  Sex: Male

DRUGS (2)
  1. NPLATE [Suspect]
     Indication: IDIOPATHIC THROMBOCYTOPENIC PURPURA
     Dosage: 10 cmg/kg
  2. HEPARIN [Concomitant]

REACTIONS (3)
  - Death [Fatal]
  - Deep vein thrombosis [Unknown]
  - Chest pain [Unknown]
